FAERS Safety Report 9068830 (Version 1)
Quarter: 2013Q1

REPORT INFORMATION
  Report Type: Spontaneous
  Country: NO (occurrence: None)
  Receive Date: 20130122
  Receipt Date: 20130122
  Transmission Date: 20140127
  Serious: Yes (Other)
  Sender: FDA-Public Use
  Company Number: NGX_01554_2013

PATIENT
  Sex: Female

DRUGS (2)
  1. QUTENZA [Suspect]
     Indication: OCCUPATIONAL EXPOSURE TO PRODUCT
     Dosage: (DF)
     Dates: start: 20121212
  2. TRANDATE [Concomitant]

REACTIONS (5)
  - Infection [None]
  - Nasopharyngitis [None]
  - Hypersensitivity [None]
  - Occupational exposure to product [None]
  - Activities of daily living impaired [None]
